FAERS Safety Report 8962431 (Version 1)
Quarter: 2012Q4

REPORT INFORMATION
  Report Type: 
  Country: IT (occurrence: IT)
  Receive Date: 20121214
  Receipt Date: 20121214
  Transmission Date: 20130627
  Serious: Yes (Hospitalization, Other)
  Sender: FDA-Public Use
  Company Number: PHHY2012IT114892

PATIENT
  Sex: Female

DRUGS (6)
  1. TEGRETOL [Suspect]
     Indication: EPILEPSY
     Dosage: 200 mg, daily
     Route: 048
     Dates: start: 20070101, end: 20120930
  2. SOTALOL [Concomitant]
     Dosage: 80 mg, UNK
     Route: 048
  3. TAPAZOL//THIAMAZOLE [Concomitant]
     Dosage: 5 mg, UNK
     Route: 048
  4. LORAZEPAM [Concomitant]
     Dosage: 1 mg, UNK
     Route: 048
  5. BLOPRESID [Concomitant]
     Dosage: 16/12.5 MG
     Route: 048
  6. CARDIRENE [Concomitant]
     Dosage: 160 mg, UNK
     Route: 048

REACTIONS (9)
  - Confabulation [Recovered/Resolved]
  - Thrombocytopenia [Recovered/Resolved]
  - Rib fracture [Recovering/Resolving]
  - Hyponatraemia [Recovered/Resolved]
  - Agitation [Recovering/Resolving]
  - Blood potassium decreased [Recovering/Resolving]
  - Blood chloride decreased [Recovering/Resolving]
  - Platelet count decreased [Recovering/Resolving]
  - Blood pressure increased [Recovering/Resolving]
